FAERS Safety Report 4595050-9 (Version None)
Quarter: 2005Q1

REPORT INFORMATION
  Report Type: 
  Country: None (occurrence: None)
  Receive Date: 20050223
  Receipt Date: 20050211
  Transmission Date: 20050727
  Serious: Yes (Death)
  Sender: FDA-Public Use
  Company Number: F01200500247

PATIENT
  Age: 43 Year
  Sex: Male

DRUGS (3)
  1. OXALIPLATIN [Suspect]
     Indication: RECTAL CANCER
     Dosage: 85 MG/M2 Q3W, INTRAVENOUS NOS
     Route: 042
     Dates: start: 20050131, end: 20050131
  2. CAPECITABINE [Suspect]
     Dosage: 1500 MG TWICE DAILY FOR 2 WEEKS, Q3W, ORAL
     Route: 048
     Dates: start: 20050131, end: 20050207
  3. PHENOBARBITAL TAB [Concomitant]

REACTIONS (1)
  - SUDDEN DEATH [None]
